FAERS Safety Report 6328394-0 (Version None)
Quarter: 2009Q3

REPORT INFORMATION
  Report Type: 
  Country: None (occurrence: None)
  Receive Date: 20090825
  Receipt Date: 20090316
  Transmission Date: 20100115
  Serious: No
  Sender: FDA-Public Use
  Company Number: US-ABBOTT-09P-163-0562757-00

PATIENT
  Age: 70 Year
  Sex: Female

DRUGS (4)
  1. SYNTHROID [Suspect]
     Indication: DRUG USE FOR UNKNOWN INDICATION
     Dates: start: 19990101
  2. SYNTHROID [Suspect]
     Dosage: 88 MCG 5 DAYS/WEEK + 100 MCG 1 DAYS/WEEK
  3. SYNTHROID [Suspect]
     Indication: DRUG USE FOR UNKNOWN INDICATION
     Dates: start: 19990101
  4. SYNTHROID [Suspect]

REACTIONS (3)
  - DIARRHOEA [None]
  - FEELING JITTERY [None]
  - PALPITATIONS [None]
